FAERS Safety Report 18253524 (Version 2)
Quarter: 2020Q4

REPORT INFORMATION
  Report Type: Spontaneous
  Country: US (occurrence: US)
  Receive Date: 20200910
  Receipt Date: 20201027
  Transmission Date: 20210113
  Serious: Yes (Other)
  Sender: FDA-Public Use
  Company Number: US-PFIZER INC-2020348570

PATIENT
  Age: 29 Year
  Sex: Male
  Weight: 113.4 kg

DRUGS (3)
  1. XELJANZ [Suspect]
     Active Substance: TOFACITINIB CITRATE
     Dosage: 10 MG, 1X/DAY
     Route: 048
     Dates: end: 20200907
  2. XELJANZ [Suspect]
     Active Substance: TOFACITINIB CITRATE
     Indication: COLITIS ULCERATIVE
     Dosage: 10 MG, 2X/DAY (ONCE IN THE MORNING AND ONCE IN THE EVENING)
     Route: 048
  3. HUMIRA [Concomitant]
     Active Substance: ADALIMUMAB
     Dosage: UNK

REACTIONS (6)
  - Drug ineffective [Unknown]
  - Myocardial infarction [Unknown]
  - Heart rate increased [Unknown]
  - Dizziness [Unknown]
  - Blood pressure increased [Unknown]
  - Cardiac flutter [Unknown]

NARRATIVE: CASE EVENT DATE: 202009
